FAERS Safety Report 25666531 (Version 1)
Quarter: 2025Q3

REPORT INFORMATION
  Report Type: Spontaneous
  Country: US (occurrence: US)
  Receive Date: 20250811
  Receipt Date: 20250811
  Transmission Date: 20251021
  Serious: No
  Sender: SANOFI AVENTIS
  Company Number: US-SA-2025SA232945

PATIENT
  Age: 4 Month

DRUGS (1)
  1. DUPIXENT [Suspect]
     Active Substance: DUPILUMAB
     Route: 063

REACTIONS (2)
  - Ocular hyperaemia [Unknown]
  - Maternal exposure during breast feeding [Unknown]
